FAERS Safety Report 15601174 (Version 1)
Quarter: 2018Q4

REPORT INFORMATION
  Report Type: Spontaneous
  Country: GB (occurrence: GB)
  Receive Date: 20181109
  Receipt Date: 20181109
  Transmission Date: 20190205
  Serious: Yes (Other)
  Sender: FDA-Public Use
  Company Number: GB-TESARO-2018-TSO1589-GB

PATIENT

DRUGS (1)
  1. ZEJULA [Suspect]
     Active Substance: NIRAPARIB
     Indication: PRODUCT USED FOR UNKNOWN INDICATION
     Dosage: 200 MG, QD
     Dates: start: 20181010

REACTIONS (5)
  - Cough [Unknown]
  - Ascites [Unknown]
  - Dyspnoea [Unknown]
  - Pleural effusion [Unknown]
  - Decreased appetite [Unknown]
